FAERS Safety Report 6796063-9 (Version None)
Quarter: 2010Q2

REPORT INFORMATION
  Report Type: 
  Country: None (occurrence: None)
  Receive Date: 20100625
  Receipt Date: 20100616
  Transmission Date: 20101027
  Serious: Yes (Other)
  Sender: FDA-Public Use
  Company Number: US-SANOFI-AVENTIS-2010SA035906

PATIENT
  Age: 66 Year
  Sex: Female
  Weight: 54.42 kg

DRUGS (6)
  1. PLAVIX [Suspect]
     Route: 048
     Dates: start: 20080101
  2. PLAVIX [Suspect]
     Route: 048
  3. REMERON [Concomitant]
  4. TYLENOL [Concomitant]
  5. LOPERAMIDE [Concomitant]
  6. CLINDEX [Concomitant]

REACTIONS (11)
  - CATARACT [None]
  - DECREASED APPETITE [None]
  - DEPRESSION [None]
  - DIARRHOEA [None]
  - EYE PAIN [None]
  - MALAISE [None]
  - NASAL CONGESTION [None]
  - OFF LABEL USE [None]
  - PAIN IN EXTREMITY [None]
  - UNDERDOSE [None]
  - WEIGHT DECREASED [None]
